FAERS Safety Report 8578433-1 (Version None)
Quarter: 2012Q3

REPORT INFORMATION
  Report Type: 
  Country: None (occurrence: None)
  Receive Date: 20120808
  Receipt Date: 20120730
  Transmission Date: 20120928
  Serious: Yes (Hospitalization, Other)
  Sender: FDA-Public Use
  Company Number: IE-MPIJNJ-2012-02622

PATIENT

DRUGS (5)
  1. ZIMOVANE [Concomitant]
     Dosage: 7.5 MG, UNK
  2. VELCADE [Suspect]
     Indication: MULTIPLE MYELOMA
     Dosage: 1.3 MG/M2, UNK
     Route: 042
     Dates: start: 20110927, end: 20120110
  3. DIFENE [Concomitant]
     Indication: PAIN
     Dosage: 75 MG, UNK
  4. OXYCONTIN [Concomitant]
     Indication: PAIN
     Dosage: 10 MG, UNK
  5. ALLOPURINOL [Concomitant]
     Indication: GOUT
     Dosage: 30 MG, UNK

REACTIONS (3)
  - FALL [None]
  - AUTONOMIC NEUROPATHY [None]
  - HYPOTENSION [None]
